FAERS Safety Report 4806723-4 (Version None)
Quarter: 2005Q4

REPORT INFORMATION
  Report Type: 
  Country: None (occurrence: None)
  Receive Date: 20051019
  Receipt Date: 20051010
  Transmission Date: 20060501
  Serious: Yes (Disabling)
  Sender: FDA-Public Use
  Company Number: TPA2005A01217

PATIENT
  Age: 41 Year
  Sex: Female

DRUGS (6)
  1. ACTOS [Suspect]
     Indication: DIABETES MELLITUS
     Dosage: SEE  IMAGE
     Route: 048
     Dates: start: 20050923, end: 20051003
  2. ACTOS [Suspect]
     Indication: DIABETES MELLITUS
     Dosage: SEE  IMAGE
     Route: 048
     Dates: start: 20051003
  3. ACTOS [Suspect]
  4. HUMULIN R [Suspect]
     Indication: DIABETES MELLITUS
     Dosage: SLINDING SCALE
     Dates: start: 20050923
  5. HUMULIN 70/30 [Suspect]
     Dosage: 27 UNITS QAM + 25 UNITS QHS, 1 IN 1 D, INJECTION
     Dates: start: 20050923
  6. HUMALOG [Concomitant]
     Indication: DIABETES MELLITUS
     Dosage: SLINDING SCALE, DAILY
     Dates: start: 20051003, end: 20051008

REACTIONS (13)
  - CHEST DISCOMFORT [None]
  - DIABETES MELLITUS INADEQUATE CONTROL [None]
  - DIFFICULTY IN WALKING [None]
  - DYSSTASIA [None]
  - EYELID OEDEMA [None]
  - MUSCLE TIGHTNESS [None]
  - PNEUMONIA [None]
  - PRURITUS [None]
  - RASH [None]
  - SWELLING [None]
  - SWOLLEN TONGUE [None]
  - VISION BLURRED [None]
  - WEIGHT INCREASED [None]
